FAERS Safety Report 8805768 (Version 1)
Quarter: 2012Q4

REPORT INFORMATION
  Report Type: 
  Country: DE (occurrence: DE)
  Receive Date: 20120924
  Receipt Date: 20120924
  Transmission Date: 20130627
  Serious: Yes (Other)
  Sender: FDA-Public Use
  Company Number: DE-AMGEN-DEUSP2012060150

PATIENT
  Sex: Female

DRUGS (1)
  1. ENBREL [Suspect]
     Indication: PRODUCT USED FOR UNKNOWN INDICATION
     Dosage: 25 mg, 2x/week
     Dates: end: 201203

REACTIONS (4)
  - Wound [Not Recovered/Not Resolved]
  - Skin atrophy [Unknown]
  - Rheumatic disorder [Unknown]
  - Nasopharyngitis [Unknown]
